FAERS Safety Report 4278560-3 (Version None)
Quarter: 2004Q1

REPORT INFORMATION
  Report Type: 
  Country: None (occurrence: None)
  Receive Date: 20040122
  Receipt Date: 20031125
  Transmission Date: 20041129
  Serious: Yes (Death, Hospitalization)
  Sender: FDA-Public Use
  Company Number: F04200300164

PATIENT
  Age: 58 Year
  Sex: Female

DRUGS (6)
  1. ELOXATIN [Suspect]
     Indication: GALLBLADDER CANCER
     Dosage: 65.11 MG/M2 OTHER (CUMULATIVE DOSE:  976.65 MG/M2) INTRAVENOUS DRIP
     Route: 041
     Dates: start: 20030929, end: 20030929
  2. GEMZAR [Suspect]
     Indication: GALLBLADDER CANCER
     Dosage: 901.56 MG/M2 OTHER (CUMULATIVE DOSE:  13523.4 MG/M2) INTRAVENOUS DRIP
     Route: 041
     Dates: start: 20030929, end: 20030929
  3. FLUOROURACIL [Suspect]
     Indication: GALLBLADDER CANCER
     Dosage: 1502.61 MG/M2 OTHER (CUMULATIVE DOSE:  22539 MG/M2) INTRAVENOUS DRIP
     Route: 041
     Dates: start: 20030929, end: 20030930
  4. NAVOBAN (TROPISETRON HYDROCHLORIDE) [Concomitant]
  5. PASPERTIN (METOCLOPRAMIDE HYDROCHLORIDE) [Concomitant]
  6. VOMEX (DIMENHYDRINATE) [Concomitant]

REACTIONS (7)
  - DUODENAL ULCER [None]
  - ENDOSCOPY GASTROINTESTINAL ABNORMAL [None]
  - GALLBLADDER CANCER [None]
  - GASTROINTESTINAL NECROSIS [None]
  - HAEMATEMESIS [None]
  - HAEMOGLOBIN DECREASED [None]
  - MALIGNANT NEOPLASM PROGRESSION [None]
